FAERS Safety Report 18582770 (Version 2)
Quarter: 2021Q1

REPORT INFORMATION
  Report Type: Report from Study
  Country: BR (occurrence: BR)
  Receive Date: 20201205
  Receipt Date: 20210208
  Transmission Date: 20210419
  Serious: Yes (Death, Hospitalization, Other)
  Sender: FDA-Public Use
  Company Number: NVSC2020BR319674

PATIENT
  Age: 68 Year
  Sex: Female

DRUGS (2)
  1. KISQALI [Suspect]
     Active Substance: RIBOCICLIB
     Indication: PRODUCT USED FOR UNKNOWN INDICATION
     Dosage: UNK
     Route: 065
  2. PIQRAY [Suspect]
     Active Substance: ALPELISIB
     Indication: BREAST NEOPLASM
     Dosage: UNK
     Route: 065
     Dates: start: 20201106

REACTIONS (8)
  - Breast cancer [Unknown]
  - Blood glucose increased [Recovered/Resolved]
  - Malignant neoplasm progression [Unknown]
  - Haemoglobin decreased [Recovered/Resolved]
  - Death [Fatal]
  - Vomiting [Unknown]
  - Infection [Recovered/Resolved]
  - Anaemia [Recovered/Resolved]

NARRATIVE: CASE EVENT DATE: 20201112
